FAERS Safety Report 24270478 (Version 1)
Quarter: 2024Q3

REPORT INFORMATION
  Report Type: Report from Study
  Country: US (occurrence: US)
  Receive Date: 20240830
  Receipt Date: 20240830
  Transmission Date: 20241017
  Serious: Yes (Hospitalization)
  Sender: NOVITIUM PHARMA
  Company Number: US-NOVITIUMPHARMA-2024USNVP01746

PATIENT
  Age: 76 Year
  Sex: Female

DRUGS (5)
  1. RIFABUTIN [Suspect]
     Active Substance: RIFABUTIN
     Indication: Atypical mycobacterial infection
     Dates: start: 202407
  2. AZITHROMYCIN [Concomitant]
     Active Substance: AZITHROMYCIN
     Indication: Atypical mycobacterial infection
     Dates: start: 202407
  3. ETHAMBUTOL [Concomitant]
     Active Substance: ETHAMBUTOL HYDROCHLORIDE
     Indication: Atypical mycobacterial infection
     Dates: start: 202407
  4. ARIKAYCE [Concomitant]
     Active Substance: AMIKACIN
     Indication: Atypical mycobacterial infection
     Dates: start: 202407
  5. XERMELO [Concomitant]
     Active Substance: TELOTRISTAT ETHYL
     Indication: Carcinoid syndrome
     Route: 048

REACTIONS (3)
  - Constipation [Recovering/Resolving]
  - Laboratory test abnormal [Unknown]
  - Diarrhoea [Recovering/Resolving]
